FAERS Safety Report 6479561-7 (Version None)
Quarter: 2009Q4

REPORT INFORMATION
  Report Type: 
  Country: None (occurrence: None)
  Receive Date: 20091207
  Receipt Date: 20091207
  Transmission Date: 20100525
  Serious: Yes (Other)
  Sender: FDA-Public Use
  Company Number: None

PATIENT
  Age: 59 Year
  Sex: Female
  Weight: 62.5964 kg

DRUGS (4)
  1. BUPROPION HCL [Suspect]
     Indication: DEPRESSION
     Dosage: ONE TABLET ONCE DAILY PO
     Route: 048
     Dates: start: 20090915, end: 20090918
  2. PROZAC [Concomitant]
  3. TRAZODONE [Concomitant]
  4. PREMARIN [Concomitant]

REACTIONS (7)
  - DEPRESSION [None]
  - DISEASE RECURRENCE [None]
  - DRUG INEFFECTIVE [None]
  - HEADACHE [None]
  - IRRITABILITY [None]
  - NERVOUSNESS [None]
  - PRODUCT SUBSTITUTION ISSUE [None]
